FAERS Safety Report 4534573-5 (Version None)
Quarter: 2004Q4

REPORT INFORMATION
  Report Type: 
  Country: None (occurrence: None)
  Receive Date: 20041214
  Receipt Date: 20040726
  Transmission Date: 20050328
  Serious: No
  Sender: FDA-Public Use
  Company Number: USA040773570

PATIENT
  Age: 62 Year
  Sex: Male
  Weight: 105 kg

DRUGS (7)
  1. CIALIS [Suspect]
     Indication: ERECTILE DYSFUNCTION
     Dosage: 20 MG
     Dates: start: 20040601
  2. HYDROCHLOROTHIAZIDE [Concomitant]
  3. ALLOPURINOL [Concomitant]
  4. VITAMIN E [Concomitant]
  5. VITAMIN B6 [Concomitant]
  6. MAGNESIUM [Concomitant]
  7. SELENIUM TRACE METAL ADDITIVE [Concomitant]

REACTIONS (1)
  - DRUG INEFFECTIVE [None]
